FAERS Safety Report 23195920 (Version 2)
Quarter: 2023Q4

REPORT INFORMATION
  Report Type: Report from Study
  Country: US (occurrence: US)
  Receive Date: 20231117
  Receipt Date: 20231212
  Transmission Date: 20240110
  Serious: No
  Sender: FDA-Public Use
  Company Number: US-ALXN-A202202696

PATIENT
  Age: 40 Year
  Sex: Male

DRUGS (6)
  1. STRENSIQ [Suspect]
     Active Substance: ASFOTASE ALFA
     Indication: Hypophosphatasia
     Dosage: 40 MG, UNK
     Route: 065
  2. STRENSIQ [Suspect]
     Active Substance: ASFOTASE ALFA
     Dosage: 80 MG, UNK
     Route: 058
  3. IBUPROFEN [Concomitant]
     Active Substance: IBUPROFEN
     Indication: Product used for unknown indication
     Dosage: UNK
     Route: 065
  4. CHONDROITIN SULFATE (BOVINE)\GLUCOSAMINE HYDROCHLORIDE [Concomitant]
     Active Substance: CHONDROITIN SULFATE (BOVINE)\GLUCOSAMINE HYDROCHLORIDE
     Indication: Product used for unknown indication
     Dosage: UNK
     Route: 048
  5. ERGOCALCIFEROL [Concomitant]
     Active Substance: ERGOCALCIFEROL
     Indication: Product used for unknown indication
     Dosage: UNK
     Route: 048
  6. VITAMIN B6 [Concomitant]
     Active Substance: PYRIDOXINE HYDROCHLORIDE
     Indication: Supplementation therapy
     Dosage: 50 MG, QD
     Route: 048

REACTIONS (26)
  - Fatigue [Not Recovered/Not Resolved]
  - Nasopharyngitis [Unknown]
  - Brain fog [Unknown]
  - Viral infection [Not Recovered/Not Resolved]
  - Upper respiratory tract congestion [Unknown]
  - Fungal infection [Unknown]
  - Asthenia [Unknown]
  - Arthralgia [Unknown]
  - Off label use [Unknown]
  - Influenza like illness [Unknown]
  - Hand-foot-and-mouth disease [Unknown]
  - Anaemia [Unknown]
  - Joint stiffness [Not Recovered/Not Resolved]
  - Rash [Unknown]
  - Haemoglobin decreased [Unknown]
  - Onychomadesis [Unknown]
  - Vitamin B6 decreased [Unknown]
  - Malaise [Unknown]
  - Injection site rash [Unknown]
  - Injection site pruritus [Unknown]
  - Injection site erythema [Unknown]
  - Injection site reaction [Unknown]
  - Injection site bruising [Unknown]
  - Headache [Unknown]
  - Skin discolouration [Unknown]
  - Blood testosterone decreased [Unknown]

NARRATIVE: CASE EVENT DATE: 20220310
